FAERS Safety Report 8564721-1 (Version None)
Quarter: 2012Q3

REPORT INFORMATION
  Report Type: 
  Country: None (occurrence: None)
  Receive Date: 20120803
  Receipt Date: 20120726
  Transmission Date: 20120928
  Serious: Yes (Hospitalization)
  Sender: FDA-Public Use
  Company Number: MX-SANOFI-AVENTIS-2012SA053147

PATIENT
  Age: 6 Year
  Sex: Male
  Weight: 19.2 kg

DRUGS (2)
  1. DIPYRONE TAB [Concomitant]
     Dosage: DOSE: 10 MG/KG/DOSE
     Route: 042
     Dates: start: 20120721
  2. CLAFORAN [Suspect]
     Indication: GASTROINTESTINAL INFECTION
     Route: 042
     Dates: start: 20120721, end: 20120726

REACTIONS (6)
  - MONOCYTOPENIA [None]
  - PYREXIA [None]
  - NEUTROPHILIA [None]
  - DRUG INEFFECTIVE [None]
  - LYMPHOCYTOSIS [None]
  - LEUKOCYTOSIS [None]
